FAERS Safety Report 7750888-1 (Version None)
Quarter: 2011Q3

REPORT INFORMATION
  Report Type: 
  Country: None (occurrence: None)
  Receive Date: 20110914
  Receipt Date: 20110908
  Transmission Date: 20111222
  Serious: Yes (Other)
  Sender: FDA-Public Use
  Company Number: US-ABBOTT-11P-163-0853703-00

PATIENT
  Age: 73 Year
  Sex: Male

DRUGS (5)
  1. ADVAIR DISKUS 100/50 [Concomitant]
     Indication: PRODUCT USED FOR UNKNOWN INDICATION
     Dosage: 52/75, DAILY
  2. GEMFIBROZIL [Concomitant]
     Indication: BLOOD TRIGLYCERIDES
     Route: 048
  3. LISINOPRIL [Concomitant]
     Indication: BLOOD PRESSURE
     Dosage: 10/12.50 MG, DAILY
     Route: 048
  4. HUMIRA [Suspect]
     Indication: PSORIASIS
     Dates: start: 20110201
  5. GOUT MEDICINE [Concomitant]
     Indication: GOUT
     Dosage: DAILY
     Route: 048

REACTIONS (3)
  - TOOTH DISORDER [None]
  - EYE HAEMORRHAGE [None]
  - LACRIMATION INCREASED [None]
